FAERS Safety Report 16714281 (Version 1)
Quarter: 2019Q3

REPORT INFORMATION
  Report Type: Spontaneous
  Country: GB (occurrence: GB)
  Receive Date: 20190819
  Receipt Date: 20190819
  Transmission Date: 20191004
  Serious: Yes (Other)
  Sender: FDA-Public Use
  Company Number: GB-ACCORD-151738

PATIENT
  Age: 56 Year
  Sex: Female

DRUGS (14)
  1. MYCOPHENOLATE MOFETIL. [Concomitant]
     Active Substance: MYCOPHENOLATE MOFETIL
     Indication: IMMUNOSUPPRESSANT DRUG THERAPY
     Dosage: RELATIVELY MODEST DOSES OF IMMUNOSUPPRESSION
  2. VINCRISTINE SULFATE. [Suspect]
     Active Substance: VINCRISTINE SULFATE
     Indication: DIFFUSE LARGE B-CELL LYMPHOMA
     Dosage: RECEIVED FOUR CYCLES OF R-CHOP THREE WEEKLY
     Dates: start: 2015, end: 201506
  3. PREDNISOLONE. [Suspect]
     Active Substance: PREDNISOLONE
     Indication: IMMUNOSUPPRESSANT DRUG THERAPY
     Dosage: RELATIVELY MODEST DOSES OF IMMUNOSUPPRESSION
     Dates: start: 2014, end: 2015
  4. CYCLOPHOSPHAMIDE/CYCLOPHOSPHAMIDE MONOHYDRATE [Suspect]
     Active Substance: CYCLOPHOSPHAMIDE
     Indication: POST TRANSPLANT LYMPHOPROLIFERATIVE DISORDER
     Dosage: RECEIVED FOUR CYCLES OF R-CHOP THREE WEEKLY
     Dates: start: 2015, end: 201506
  5. RITUXIMAB. [Suspect]
     Active Substance: RITUXIMAB
     Indication: DIFFUSE LARGE B-CELL LYMPHOMA
     Dosage: RECEIVED FOUR CYCLES OF R-CHOP THREE WEEKLY
     Dates: start: 2015, end: 201506
  6. RITUXIMAB. [Suspect]
     Active Substance: RITUXIMAB
     Indication: POST TRANSPLANT LYMPHOPROLIFERATIVE DISORDER
     Dosage: RECEIVED FOUR CYCLES OF R-CHOP THREE WEEKLY
     Dates: start: 2015, end: 201506
  7. DOXORUBICIN [Suspect]
     Active Substance: DOXORUBICIN
     Indication: DIFFUSE LARGE B-CELL LYMPHOMA
     Dosage: RECEIVED FOUR CYCLES OF R-CHOP THREE WEEKLY
     Dates: start: 2015, end: 201506
  8. PREDNISOLONE. [Suspect]
     Active Substance: PREDNISOLONE
     Indication: IMMUNOSUPPRESSANT DRUG THERAPY
     Dates: start: 2014
  9. PREDNISONE. [Suspect]
     Active Substance: PREDNISONE
     Indication: POST TRANSPLANT LYMPHOPROLIFERATIVE DISORDER
     Dosage: RECEIVED FOUR CYCLES OF R-CHOP THREE WEEKLY
     Dates: start: 2015, end: 201506
  10. VINCRISTINE [Suspect]
     Active Substance: VINCRISTINE
     Indication: POST TRANSPLANT LYMPHOPROLIFERATIVE DISORDER
     Dosage: RECEIVED FOUR CYCLES OF R-CHOP THREE WEEKLY
     Dates: start: 2015, end: 201506
  11. MYCOPHENOLIC ACID. [Suspect]
     Active Substance: MYCOPHENOLIC ACID
     Indication: IMMUNOSUPPRESSANT DRUG THERAPY
     Dosage: RELATIVELY MODEST DOSES OF IMMUNOSUPPRESSION
     Dates: start: 2014, end: 2015
  12. PREDNISONE. [Suspect]
     Active Substance: PREDNISONE
     Indication: DIFFUSE LARGE B-CELL LYMPHOMA
     Dosage: RECEIVED FOUR CYCLES OF R-CHOP THREE WEEKLY
     Dates: start: 2015, end: 201506
  13. CYCLOPHOSPHAMIDE. [Suspect]
     Active Substance: CYCLOPHOSPHAMIDE
     Indication: DIFFUSE LARGE B-CELL LYMPHOMA
     Dosage: RECEIVED FOUR CYCLES OF R-CHOP THREE WEEKLY
     Dates: start: 2015, end: 201506
  14. RITUXIMAB. [Suspect]
     Active Substance: RITUXIMAB
     Indication: DIFFUSE LARGE B-CELL LYMPHOMA
     Dosage: MONOTHERAPY
     Dates: start: 2015, end: 2015

REACTIONS (6)
  - Bacterial infection [Recovering/Resolving]
  - Cytomegalovirus infection [Unknown]
  - Post transplant lymphoproliferative disorder [Recovered/Resolved]
  - Infected skin ulcer [Recovering/Resolving]
  - Anaemia [Unknown]
  - Diffuse large B-cell lymphoma [Recovered/Resolved]

NARRATIVE: CASE EVENT DATE: 2015
